FAERS Safety Report 25918313 (Version 2)
Quarter: 2025Q4

REPORT INFORMATION
  Report Type: Spontaneous
  Country: US (occurrence: US)
  Receive Date: 20251014
  Receipt Date: 20251030
  Transmission Date: 20260117
  Serious: Yes (Hospitalization, Other)
  Sender: HIKMA
  Company Number: US-HIKMA PHARMACEUTICALS USA INC.-US-H14001-25-11026

PATIENT
  Age: 67 Year
  Sex: Male

DRUGS (18)
  1. ACORAMIDIS [Suspect]
     Active Substance: ACORAMIDIS
     Indication: Cardiac amyloidosis
     Dosage: UNK
     Route: 065
  2. AMIODARONE [Suspect]
     Active Substance: AMIODARONE
     Indication: Atrial fibrillation
     Dosage: 1080 MILLIGRAM, QD
     Route: 042
     Dates: start: 20250804, end: 20250805
  3. TORSEMIDE [Suspect]
     Active Substance: TORSEMIDE
     Indication: Cardiac failure
     Dosage: 20 MILLIGRAM, QD
     Route: 048
     Dates: start: 20210221, end: 20250804
  4. ACETAMINOPHEN [Concomitant]
     Active Substance: ACETAMINOPHEN
     Indication: Product used for unknown indication
     Dosage: 1000 MILLIGRAM, Q8H
     Route: 048
  5. ACETAMINOPHEN [Concomitant]
     Active Substance: ACETAMINOPHEN
     Dosage: 650 MILLIGRAM, Q6H
     Route: 048
  6. ASPIRIN [Concomitant]
     Active Substance: ASPIRIN
     Indication: Coronary artery disease
     Dosage: 81 MILLIGRAM, QD
     Route: 048
  7. ATORVASTATIN [Concomitant]
     Active Substance: ATORVASTATIN
     Indication: Hyperlipidaemia
     Dosage: 40 MILLIGRAM, QD
     Route: 048
     Dates: start: 20210623
  8. AZELAIC ACID;IVERMECTIN;METRONIDAZOLE [Concomitant]
     Indication: Product used for unknown indication
     Dosage: UNK, BID
     Route: 061
  9. CELEBREX [Concomitant]
     Active Substance: CELECOXIB
     Dosage: 200 MILLIGRAM, BID
     Route: 048
  10. CELEBREX [Concomitant]
     Active Substance: CELECOXIB
     Indication: Arthralgia
     Dosage: 400 MILLIGRAM, QD
     Route: 048
     Dates: start: 20250725
  11. ELIQUIS [Concomitant]
     Active Substance: APIXABAN
     Indication: Atrial fibrillation
     Dosage: 10 MILLIGRAM, QD
     Route: 048
     Dates: start: 20190605, end: 20250724
  12. ELIQUIS [Concomitant]
     Active Substance: APIXABAN
     Dosage: 5 MG, BID
     Route: 048
  13. ELIQUIS [Concomitant]
     Active Substance: APIXABAN
     Dosage: UNK
     Route: 048
  14. JARDIANCE [Concomitant]
     Active Substance: EMPAGLIFLOZIN
     Indication: Cardiac failure congestive
     Dosage: 10 MILLIGRAM, QD
     Route: 048
     Dates: start: 20240320
  15. METOPROLOL SUCCINATE [Concomitant]
     Active Substance: METOPROLOL SUCCINATE
     Indication: Atrial fibrillation
     Dosage: 12.5 MILLIGRAM, QD
     Route: 048
     Dates: start: 20240913
  16. OXYCODONE [Concomitant]
     Active Substance: OXYCODONE
     Indication: Arthralgia
     Dosage: 5 MILLIGRAM, Q4H (AS NEEDED)
     Route: 048
     Dates: start: 20250725
  17. TIKOSYN [Concomitant]
     Active Substance: DOFETILIDE
     Indication: Atrial fibrillation
     Dosage: 500 MILLIGRAM, QD
     Route: 048
     Dates: start: 20220816
  18. TRANEXAMIC ACID [Concomitant]
     Active Substance: TRANEXAMIC ACID
     Indication: Coronary artery disease
     Dosage: 1300 MILLIGRAM, QD
     Route: 048

REACTIONS (25)
  - Arthralgia [Not Recovered/Not Resolved]
  - Atrial fibrillation [Recovered/Resolved]
  - Condition aggravated [Unknown]
  - Hypotension [Unknown]
  - Basophil count increased [Not Recovered/Not Resolved]
  - Blood urea increased [Recovered/Resolved]
  - Brain natriuretic peptide increased [Unknown]
  - Eosinophil count increased [Unknown]
  - Haematocrit decreased [Not Recovered/Not Resolved]
  - Haemoglobin decreased [Not Recovered/Not Resolved]
  - International normalised ratio increased [Unknown]
  - Prothrombin time prolonged [Unknown]
  - Red blood cell count decreased [Not Recovered/Not Resolved]
  - Troponin increased [Not Recovered/Not Resolved]
  - Incisional drainage [Recovered/Resolved]
  - Peripheral swelling [Unknown]
  - Ventricular tachycardia [Unknown]
  - Erythema [Unknown]
  - Oedema peripheral [Unknown]
  - Loss of personal independence in daily activities [Unknown]
  - Effusion [Unknown]
  - Pallor [Unknown]
  - Haemarthrosis [Unknown]
  - Cardiac amyloidosis [Unknown]
  - Overdose [Unknown]

NARRATIVE: CASE EVENT DATE: 20250620
